FAERS Safety Report 13015245 (Version 1)
Quarter: 2016Q4

REPORT INFORMATION
  Report Type: Spontaneous
  Country: SE (occurrence: SE)
  Receive Date: 20161211
  Receipt Date: 20161211
  Transmission Date: 20170207
  Serious: Yes (Hospitalization)
  Sender: FDA-Public Use
  Company Number: SE-TEVA-716043ACC

PATIENT
  Age: 50 Year
  Sex: Female

DRUGS (6)
  1. STESOLID [Suspect]
     Active Substance: DIAZEPAM
     Dosage: UNKNOWN STRENGTH 10-15 TABLETS
     Dates: start: 20120819, end: 20120819
  2. ATARAX [Suspect]
     Active Substance: HYDROXYZINE\HYDROXYZINE HYDROCHLORIDE
     Dosage: 17 TABLETS
     Dates: start: 20120820, end: 20120820
  3. VENLAFAXINE [Concomitant]
     Active Substance: VENLAFAXINE HYDROCHLORIDE
  4. ALVEDON 665 MG MODIFIED-RELEASE TABLET [Suspect]
     Active Substance: ACETAMINOPHEN
     Dosage: 100 ST
     Dates: start: 20120820, end: 20120820
  5. ALVEDON 500 MG FILM-COATED TABLET [Suspect]
     Active Substance: ACETAMINOPHEN
     Dosage: ALMOST AN ENTIRE JAR
     Dates: start: 20120820, end: 20120820
  6. TOPAMAX [Concomitant]
     Active Substance: TOPIRAMATE

REACTIONS (13)
  - Suicide attempt [Recovered/Resolved]
  - Blood lactic acid increased [Unknown]
  - Faeces discoloured [Unknown]
  - Depressed level of consciousness [Recovered/Resolved]
  - International normalised ratio increased [Unknown]
  - Toxicity to various agents [Recovered/Resolved]
  - Analgesic drug level increased [Recovered/Resolved]
  - Abdominal pain [Unknown]
  - Respiratory rate increased [Unknown]
  - Overdose [Recovered/Resolved]
  - Vomiting [Recovered/Resolved]
  - Blood bilirubin increased [None]
  - Intentional overdose [None]

NARRATIVE: CASE EVENT DATE: 20120819
